FAERS Safety Report 5815255-6 (Version None)
Quarter: 2008Q3

REPORT INFORMATION
  Report Type: 
  Country: None (occurrence: None)
  Receive Date: 20080718
  Receipt Date: 20080711
  Transmission Date: 20090109
  Serious: Yes (Hospitalization)
  Sender: FDA-Public Use
  Company Number: AU-BOEHRINGER INGELHEIM GMBH, GERMANY-2008-BP-10955AU

PATIENT

DRUGS (1)
  1. MOBIC [Suspect]
     Route: 048

REACTIONS (1)
  - BONE MARROW FAILURE [None]
